FAERS Safety Report 7910210-4 (Version None)
Quarter: 2011Q4

REPORT INFORMATION
  Report Type: 
  Country: None (occurrence: None)
  Receive Date: 20111111
  Receipt Date: 20111103
  Transmission Date: 20120403
  Serious: Yes (Hospitalization)
  Sender: FDA-Public Use
  Company Number: US-MILLENNIUM PHARMACEUTICALS, INC.-2011-05006

PATIENT
  Sex: Male
  Weight: 75.873 kg

DRUGS (15)
  1. MIRALAX [Concomitant]
     Indication: PRODUCT USED FOR UNKNOWN INDICATION
     Dosage: 17 G, BID
     Route: 048
  2. VITAMIN B COMPLEX                  /00003501/ [Concomitant]
     Indication: PRODUCT USED FOR UNKNOWN INDICATION
     Dosage: UNK
     Route: 048
  3. ACYCLOVIR [Concomitant]
     Indication: PRODUCT USED FOR UNKNOWN INDICATION
     Dosage: 400 MG, BID
     Route: 048
  4. SENNA                              /00142201/ [Concomitant]
     Indication: PRODUCT USED FOR UNKNOWN INDICATION
     Dosage: UNK
     Route: 048
  5. ZOMETA [Suspect]
     Indication: MULTIPLE MYELOMA
     Dosage: 4 MG, UNK
     Route: 042
     Dates: start: 20100401, end: 20100412
  6. LACTULOSE [Concomitant]
     Indication: PRODUCT USED FOR UNKNOWN INDICATION
     Dosage: 30 ML, PRN
     Route: 048
  7. VITAMIN D [Concomitant]
     Indication: PRODUCT USED FOR UNKNOWN INDICATION
     Dosage: UNK
     Route: 048
  8. DEXAMETHASONE [Suspect]
     Indication: MULTIPLE MYELOMA
     Dosage: 20 MG, CYCLIC
     Route: 048
     Dates: start: 20100401, end: 20100412
  9. CALCIUM PLUS D3 [Concomitant]
     Indication: PRODUCT USED FOR UNKNOWN INDICATION
     Dosage: 500 MG, BID
     Route: 048
  10. FISH OIL [Concomitant]
     Indication: PRODUCT USED FOR UNKNOWN INDICATION
     Dosage: UNK
     Route: 048
  11. OXYCONTIN [Concomitant]
     Indication: PRODUCT USED FOR UNKNOWN INDICATION
     Dosage: 20 MG, UNK
     Route: 048
  12. VELCADE [Suspect]
     Indication: MULTIPLE MYELOMA
     Dosage: 2.43 MG, CYCLIC
     Route: 042
     Dates: start: 20100401, end: 20100412
  13. DULCOLAX [Concomitant]
     Indication: PRODUCT USED FOR UNKNOWN INDICATION
     Dosage: UNK
     Route: 048
  14. FENTANYL [Concomitant]
     Indication: PRODUCT USED FOR UNKNOWN INDICATION
     Dosage: 25 UG, UNK
     Route: 061
  15. PERCOCET [Concomitant]
     Indication: PRODUCT USED FOR UNKNOWN INDICATION
     Dosage: UNK
     Route: 048

REACTIONS (11)
  - BACK PAIN [None]
  - GENERALISED OEDEMA [None]
  - TREATMENT FAILURE [None]
  - HAEMODIALYSIS [None]
  - TUMOUR LYSIS SYNDROME [None]
  - ASCITES [None]
  - CHOLELITHIASIS [None]
  - RENAL FAILURE ACUTE [None]
  - MUSCLE HAEMORRHAGE [None]
  - PANCYTOPENIA [None]
  - HEPATIC STEATOSIS [None]
